FAERS Safety Report 10044593 (Version 1)
Quarter: 2014Q1

REPORT INFORMATION
  Report Type: Spontaneous
  Country: US (occurrence: None)
  Receive Date: 20140325
  Receipt Date: 20140325
  Transmission Date: 20141002
  Serious: Yes (Death)
  Sender: FDA-Public Use
  Company Number: AUR-APL-2014-03805

PATIENT
  Age: 44 Year
  Sex: Male

DRUGS (5)
  1. AMLODIPINE (AMLODIPINE) [Suspect]
     Indication: PRODUCT USED FOR UNKNOWN INDICATION
     Route: 048
  2. ATENOLOL (ATENOLOL) [Suspect]
     Indication: PRODUCT USED FOR UNKNOWN INDICATION
  3. INSULIN (INSULIN) [Suspect]
     Indication: PRODUCT USED FOR UNKNOWN INDICATION
  4. PRAVASTATIN (PRAVASTATIN) [Suspect]
     Indication: PRODUCT USED FOR UNKNOWN INDICATION
  5. GEMFIBROZIL (GEMFIBROZIL) [Suspect]
     Indication: PRODUCT USED FOR UNKNOWN INDICATION

REACTIONS (2)
  - Completed suicide [None]
  - Toxicity to various agents [None]
